FAERS Safety Report 6720490-9 (Version None)
Quarter: 2010Q2

REPORT INFORMATION
  Report Type: 
  Country: None (occurrence: None)
  Receive Date: 20100511
  Receipt Date: 20100503
  Transmission Date: 20101027
  Serious: Yes (Death, Other)
  Sender: FDA-Public Use
  Company Number: JP-ROCHE-701689

PATIENT
  Age: 55 Year
  Sex: Male

DRUGS (5)
  1. MYCOPHENOLATE MOFETIL [Suspect]
     Indication: ACUTE GRAFT VERSUS HOST DISEASE
     Dosage: INITIAL DOSE: 500 MG, MAX DOSE: 1,000 MG/DAY, ACCUMULATIVE AND TOTAL DOSE: 159,500 MG.
     Route: 048
  2. TACROLIMUS [Suspect]
     Indication: PROPHYLAXIS AGAINST GRAFT VERSUS HOST DISEASE
     Route: 065
  3. METHYLPREDNISOLONE 4MG TAB [Suspect]
     Indication: ACUTE GRAFT VERSUS HOST DISEASE
     Route: 065
  4. PREDNISOLONE [Suspect]
     Indication: ACUTE GRAFT VERSUS HOST DISEASE
     Route: 065
  5. PREDNISOLONE [Suspect]
     Route: 065

REACTIONS (2)
  - ACUTE MYELOID LEUKAEMIA RECURRENT [None]
  - BRONCHOPULMONARY ASPERGILLOSIS [None]
